FAERS Safety Report 22017654 (Version 1)
Quarter: 2023Q1

REPORT INFORMATION
  Report Type: Spontaneous
  Country: US (occurrence: US)
  Receive Date: 20230221
  Receipt Date: 20230221
  Transmission Date: 20230418
  Serious: Yes (Life-Threatening, Hospitalization, Other)
  Sender: FDA-Public Use
  Company Number: US-BEXIMCO-2023BEX00010

PATIENT
  Age: 52 Year
  Sex: Female

DRUGS (3)
  1. CARVEDILOL [Suspect]
     Active Substance: CARVEDILOL
     Dosage: ^HANDFULS^
  2. DILTIAZEM [Suspect]
     Active Substance: DILTIAZEM
     Dosage: ^HANDFULS^
  3. ALDACTONE [Suspect]
     Active Substance: SPIRONOLACTONE
     Dosage: ^HANDFULS^

REACTIONS (2)
  - Suicide attempt [Recovered/Resolved]
  - Overdose [Recovered/Resolved]
